FAERS Safety Report 13406897 (Version 4)
Quarter: 2017Q2

REPORT INFORMATION
  Report Type: Spontaneous
  Country: JP (occurrence: JP)
  Receive Date: 20170405
  Receipt Date: 20170620
  Transmission Date: 20170830
  Serious: Yes (Death, Other)
  Sender: FDA-Public Use
  Company Number: JP-PFIZER INC-2017142214

PATIENT
  Age: 66 Year
  Sex: Female

DRUGS (4)
  1. CELLCEPT [Concomitant]
     Active Substance: MYCOPHENOLATE MOFETIL\MYCOPHENOLATE MOFETIL HYDROCHLORIDE
  2. CRAVIT [Suspect]
     Active Substance: LEVOFLOXACIN
     Dosage: UNK
  3. VANCOMYCIN HCL [Suspect]
     Active Substance: VANCOMYCIN HYDROCHLORIDE
     Indication: VIRAL UPPER RESPIRATORY TRACT INFECTION
     Dosage: UNK
     Route: 041
     Dates: start: 20160831
  4. VENOGLOBULIN [Concomitant]
     Active Substance: HUMAN IMMUNOGLOBULIN G
     Dosage: UNK
     Dates: start: 20160802

REACTIONS (13)
  - Respiratory failure [Fatal]
  - Platelet count decreased [Unknown]
  - Diarrhoea [Unknown]
  - Eczema [Unknown]
  - Erythema [Unknown]
  - Pneumonia staphylococcal [Fatal]
  - Skin discolouration [Unknown]
  - Vomiting [Unknown]
  - Graft versus host disease [Unknown]
  - Hyperhidrosis [Unknown]
  - Metabolic acidosis [Unknown]
  - Blood creatine phosphokinase increased [Unknown]
  - Product use in unapproved indication [Unknown]

NARRATIVE: CASE EVENT DATE: 20160831
